FAERS Safety Report 6970523 (Version 7)
Quarter: 2014Q1

REPORT INFORMATION
  Report Type: Report from Study
  Country: JP (occurrence: JP)
  Receive Date: 20090416
  Receipt Date: 20140102
  Transmission Date: 20141002
  Serious: Yes (Death, Life-Threatening, Other)
  Sender: FDA-Public Use
  Company Number: JP-BRISTOL-MYERS SQUIBB COMPANY-14588156

PATIENT
  Age: 64 Year
  Sex: Female

DRUGS (8)
  1. SPRYCEL (PH+ALL) TABS 70 MG [Suspect]
     Indication: ACUTE LYMPHOCYTIC LEUKAEMIA RECURRENT
     Dosage: DRUG DISCONTINUED
     Route: 048
     Dates: start: 20090403, end: 20090411
  2. FULCALIQ 2 [Suspect]
     Indication: ACUTE LYMPHOCYTIC LEUKAEMIA RECURRENT
     Dosage: 1 DOSAGE FORM =  1BAG
     Route: 042
     Dates: end: 20090411
  3. IMATINIB MESILATE [Concomitant]
     Indication: ACUTE LYMPHOCYTIC LEUKAEMIA
     Dosage: FORM-TAB.
     Route: 048
     Dates: start: 20080226, end: 20090402
  4. FILGRASTIM [Concomitant]
     Dosage: FORM-INJ
     Route: 058
     Dates: start: 20090409, end: 20090411
  5. CARBAZOCHROME SODIUM SULFONATE [Concomitant]
     Dosage: CARBAZOCHROME SODIUM SULFONATE HYDRATE.FORM-INJ
     Route: 042
     Dates: end: 20090410
  6. TRANEXAMIC ACID [Concomitant]
     Dates: end: 20090411
  7. CHLORPHENAMINE [Concomitant]
     Indication: ALLERGY PROPHYLAXIS
     Dosage: FORM-INJ. 1 DF = 2A
     Route: 042
     Dates: end: 20090409
  8. FUROSEMIDE [Concomitant]
     Dosage: FORM-INJ
     Route: 042
     Dates: end: 20090407

REACTIONS (11)
  - Gastrointestinal haemorrhage [Fatal]
  - Malignant neoplasm progression [Fatal]
  - Platelet count decreased [Not Recovered/Not Resolved]
  - White blood cell count decreased [Not Recovered/Not Resolved]
  - Anaemia [Not Recovered/Not Resolved]
  - Febrile neutropenia [Not Recovered/Not Resolved]
  - Neutrophil count decreased [Not Recovered/Not Resolved]
  - Metabolic acidosis [Not Recovered/Not Resolved]
  - Hyperglycaemia [Not Recovered/Not Resolved]
  - Diarrhoea [Not Recovered/Not Resolved]
  - Vomiting [Not Recovered/Not Resolved]
